FAERS Safety Report 7470617-9 (Version None)
Quarter: 2011Q2

REPORT INFORMATION
  Report Type: 
  Country: None (occurrence: None)
  Receive Date: 20110510
  Receipt Date: 20110426
  Transmission Date: 20111010
  Serious: Yes (Death, Congenital Anomaly)
  Sender: FDA-Public Use
  Company Number: FR-JNJFOC-20110411235

PATIENT
  Sex: Female

DRUGS (3)
  1. REMICADE [Suspect]
     Indication: DRUG EXPOSURE DURING PREGNANCY
     Route: 064
  2. METHOTREXATE [Suspect]
     Indication: DRUG EXPOSURE DURING PREGNANCY
     Route: 064
  3. CONTRACEPTION [Concomitant]
     Route: 064

REACTIONS (4)
  - ADRENAL HAEMORRHAGE [None]
  - INTRA-UTERINE DEATH [None]
  - CALCINOSIS [None]
  - HEPATIC HAEMORRHAGE [None]
